FAERS Safety Report 20110175 (Version 1)
Quarter: 2021Q4

REPORT INFORMATION
  Report Type: Report from Study
  Country: US (occurrence: US)
  Receive Date: 20211124
  Receipt Date: 20211124
  Transmission Date: 20220303
  Serious: Yes (Other)
  Sender: FDA-Public Use
  Company Number: US-GILEAD-2021-0553821

PATIENT
  Age: 48 Year
  Sex: Male

DRUGS (2)
  1. SACITUZUMAB GOVITECAN [Suspect]
     Active Substance: SACITUZUMAB GOVITECAN
     Indication: Bladder cancer
     Dosage: UNK, Q3WK FOR 7 ROUNDS
     Route: 065
     Dates: start: 20210414, end: 20210908
  2. SACITUZUMAB GOVITECAN [Suspect]
     Active Substance: SACITUZUMAB GOVITECAN
     Dosage: UNK, Q3WK FOR 7 ROUNDS
     Route: 065
     Dates: start: 20211115

REACTIONS (6)
  - Bladder cancer recurrent [Not Recovered/Not Resolved]
  - Renal pain [Unknown]
  - Alopecia [Unknown]
  - Diarrhoea [Unknown]
  - Fatigue [Unknown]
  - Hernia [Not Recovered/Not Resolved]

NARRATIVE: CASE EVENT DATE: 20210101
